FAERS Safety Report 8987519 (Version 2)
Quarter: 2013Q1

REPORT INFORMATION
  Report Type: Report from Study
  Country: JP (occurrence: JP)
  Receive Date: 20121227
  Receipt Date: 20130225
  Transmission Date: 20140127
  Serious: Yes (Death, Other)
  Sender: FDA-Public Use
  Company Number: PHHY2012JP120118

PATIENT
  Age: 77 Year
  Sex: 0
  Weight: 63 kg

DRUGS (2)
  1. AFINITOR [Suspect]
     Indication: METASTATIC RENAL CELL CARCINOMA
     Dosage: 10 MG, DAILY
     Route: 048
     Dates: start: 20110901, end: 20111127
  2. AFINITOR [Suspect]
     Dosage: 5 MG, DAILY
     Route: 048
     Dates: start: 20111128, end: 20111219

REACTIONS (4)
  - Malignant neoplasm progression [Fatal]
  - Metastatic renal cell carcinoma [Fatal]
  - C-reactive protein increased [Unknown]
  - Lymphocyte count decreased [Unknown]
